FAERS Safety Report 7897703-3 (Version None)
Quarter: 2011Q4

REPORT INFORMATION
  Report Type: 
  Country: None (occurrence: None)
  Receive Date: 20111107
  Receipt Date: 20111029
  Transmission Date: 20120403
  Serious: No
  Sender: FDA-Public Use
  Company Number: US-B.I. PHARMACEUTICALS,INC./RIDGEFIELD-2011-BP-25229BP

PATIENT
  Sex: Female
  Weight: 70.31 kg

DRUGS (3)
  1. ZANTAC 150 [Suspect]
     Dosage: 450 MG
     Route: 048
     Dates: start: 20111028, end: 20111028
  2. ZOFRAN [Concomitant]
     Indication: NAUSEA
     Dates: start: 20110101
  3. ZANTAC 150 [Suspect]
     Indication: DYSPEPSIA
     Dosage: 300 MG
     Route: 048
     Dates: start: 20110101

REACTIONS (1)
  - INCORRECT DOSE ADMINISTERED [None]
